FAERS Safety Report 5886439-6 (Version None)
Quarter: 2008Q3

REPORT INFORMATION
  Report Type: 
  Country: None (occurrence: None)
  Receive Date: 20080917
  Receipt Date: 20080911
  Transmission Date: 20090109
  Serious: Yes (Hospitalization)
  Sender: FDA-Public Use
  Company Number: FR-AVENTIS-200813292FR

PATIENT
  Age: 67 Year
  Sex: Male

DRUGS (5)
  1. FLAGYL [Suspect]
     Route: 042
     Dates: start: 20080425, end: 20080510
  2. FORTUMSET [Suspect]
     Route: 042
     Dates: start: 20080426, end: 20080510
  3. OLMETEC [Concomitant]
  4. OMIX [Concomitant]
  5. ROCEPHIN [Concomitant]
     Route: 042
     Dates: start: 20080424, end: 20080424

REACTIONS (1)
  - HEPATITIS CHOLESTATIC [None]
